FAERS Safety Report 14837938 (Version 1)
Quarter: 2018Q2

REPORT INFORMATION
  Report Type: Spontaneous
  Country: DE (occurrence: DE)
  Receive Date: 20180502
  Receipt Date: 20180502
  Transmission Date: 20180711
  Serious: Yes (Hospitalization)
  Sender: FDA-Public Use
  Company Number: DE-ANIPHARMA-2018-DE-000067

PATIENT
  Age: 77 Year
  Sex: Female
  Weight: 72 kg

DRUGS (4)
  1. TORASEMID [Suspect]
     Active Substance: TORSEMIDE
     Dosage: 20MG, 1-0-0-0
     Route: 048
  2. ASA [Concomitant]
     Active Substance: ASPIRIN
     Dosage: 100MG, 1-0-0-0
     Route: 048
  3. CANDESARTAN CILEXETIL. [Suspect]
     Active Substance: CANDESARTAN CILEXETIL
     Dosage: 32MG, 1-0-0-0
     Route: 048
  4. TROMCARDIN [Concomitant]
     Active Substance: MAGNESIUM ASPARTATE\POTASSIUM ASPARTATE
     Route: 065

REACTIONS (8)
  - Dizziness [Unknown]
  - Nausea [Unknown]
  - Dyspnoea [Unknown]
  - Head discomfort [Unknown]
  - Hypoacusis [Unknown]
  - Thirst [Unknown]
  - Paraesthesia [Unknown]
  - Hypertension [Unknown]
